FAERS Safety Report 8391866-1 (Version None)
Quarter: 2012Q2

REPORT INFORMATION
  Report Type: 
  Country: None (occurrence: None)
  Receive Date: 20120529
  Receipt Date: 20120521
  Transmission Date: 20120825
  Serious: Yes (Hospitalization)
  Sender: FDA-Public Use
  Company Number: US-GLAXOSMITHKLINE-A0964444A

PATIENT
  Age: 57 Year
  Sex: Female
  Weight: 56.2 kg

DRUGS (19)
  1. CALCIUM CARBONATE [Concomitant]
  2. ZOFRAN [Concomitant]
  3. AMARYL [Concomitant]
  4. ASPIRIN [Concomitant]
  5. ACETAMINOPHEN [Concomitant]
  6. SENOKOT [Concomitant]
  7. NITROSTAT [Concomitant]
  8. PREDNISONE TAB [Concomitant]
  9. FLOLAN [Suspect]
     Indication: PULMONARY ARTERIAL HYPERTENSION
     Dosage: 27.7NGKM CONTINUOUS
     Route: 042
     Dates: start: 20111027
  10. TRENTAL [Concomitant]
  11. POTASSIUM CHLORIDE [Concomitant]
  12. LANTUS [Concomitant]
  13. MUCINEX [Concomitant]
  14. VENTOLIN HFA [Concomitant]
  15. CALCIUM + MAGNESIUM + ZINC [Concomitant]
  16. GABAPENTIN [Concomitant]
  17. OXYGEN [Concomitant]
     Dosage: 2L CONTINUOUS
  18. TORSEMIDE [Concomitant]
  19. AMBIEN [Concomitant]

REACTIONS (9)
  - PNEUMONIA [None]
  - ASTHENIA [None]
  - DYSPNOEA [None]
  - INSOMNIA [None]
  - SYNCOPE [None]
  - DIZZINESS POSTURAL [None]
  - FATIGUE [None]
  - HYPOTENSION [None]
  - PALPITATIONS [None]
